FAERS Safety Report 20511419 (Version 1)
Quarter: 2022Q1

REPORT INFORMATION
  Report Type: Spontaneous
  Country: US (occurrence: None)
  Receive Date: 20220223
  Receipt Date: 20220223
  Transmission Date: 20220423
  Serious: Yes (Other)
  Sender: FDA-Public Use
  Company Number: None

PATIENT
  Age: 62 Year
  Sex: Male
  Weight: 107.5 kg

DRUGS (4)
  1. ROSUVASTATIN [Suspect]
     Active Substance: ROSUVASTATIN
     Indication: Hyperlipidaemia
     Dosage: FREQUENCY : DAILY;?
     Route: 048
     Dates: start: 20190719, end: 20191129
  2. VALTREX [Concomitant]
  3. LEVOTHYROXINE [Concomitant]
  4. TESTOSTERONE [Concomitant]

REACTIONS (2)
  - Headache [None]
  - Pain in extremity [None]

NARRATIVE: CASE EVENT DATE: 20191127
